FAERS Safety Report 10388885 (Version 1)
Quarter: 2014Q1

REPORT INFORMATION
  Report Type: Spontaneous
  Country: US (occurrence: None)
  Receive Date: 20140306
  Receipt Date: 20140306
  Transmission Date: 20141002
  Serious: Yes (Other)
  Sender: FDA-Public Use
  Company Number: 163-21880-13070218

PATIENT
  Age: 69 Year
  Sex: Male
  Weight: 80.3 kg

DRUGS (12)
  1. REVLIMID (LENALIDOMIDE) (10 MILLIGRAM, CAPSULES) [Suspect]
     Indication: PLASMA CELL MYELOMA
     Route: 048
     Dates: start: 20061003
  2. AREDIA (PAMIDRONATE DISODIUM) [Concomitant]
  3. LANTUS (INSULIN GLARGINE) [Concomitant]
  4. GABAPENTIN [Concomitant]
  5. LEVOTHYROXINE [Concomitant]
  6. AMITRIPTYLINE HCL (AMITRIPTYLINE HYDROCHLORIDE) [Concomitant]
  7. OMEPRAZOLE DR (OMEPRAZOLE) [Concomitant]
  8. ASPIRIN (ACETYLSALICYLIC ACID) [Concomitant]
  9. MULTIVITAMINS [Concomitant]
  10. RA OMEGA 3-6-9 (OMEGA 3 6 9) [Concomitant]
  11. ASCORBIC ACID [Concomitant]
  12. VITAMIN B12 (CYANOCOBALAMIN) [Concomitant]

REACTIONS (1)
  - Platelet count decreased [None]
